FAERS Safety Report 4519355-2 (Version None)
Quarter: 2004Q4

REPORT INFORMATION
  Report Type: 
  Country: None (occurrence: None)
  Receive Date: 20041201
  Receipt Date: 20041118
  Transmission Date: 20050328
  Serious: Yes (Death)
  Sender: FDA-Public Use
  Company Number: D01200404605

PATIENT
  Age: 75 Year
  Sex: Male
  Weight: 51.7 kg

DRUGS (20)
  1. CISPLATIN [Suspect]
     Indication: SMALL CELL LUNG CANCER EXTENSIVE STAGE
     Dosage: 80 MG/M2 CONT- INTRAVENOUS NOS
     Route: 042
     Dates: start: 20041013, end: 20041013
  2. ETOPOSIDE [Suspect]
     Indication: SMALL CELL LUNG CANCER EXTENSIVE STAGE
     Dosage: 120 MG/M2 GIVE ON DAYS 1, 2, AND 3, IN A 30-MINUTE INFUSION - INTRAVENOUS NOS
     Route: 042
     Dates: start: 20041013, end: 20041015
  3. ACETYLSALICYLIC ACID [Concomitant]
  4. DEXAMETHASONE [Concomitant]
  5. CEFTRIAXONE SODIUM [Concomitant]
  6. IPARTROPIUM BROMIDE [Concomitant]
  7. AMOXICILLIN/CLAUVLANCE ACID [Concomitant]
  8. SODIUM BICARBONATE [Concomitant]
  9. NYSTATIN [Concomitant]
  10. ALLOPURINOL [Concomitant]
  11. INSULIN HUMAN [Concomitant]
  12. TEMAZEPAM [Concomitant]
  13. METFORMIN HCL [Concomitant]
  14. INSULIN INITARD NORDISK [Concomitant]
  15. ALBUTEROL [Concomitant]
  16. OMEPRAZOLE [Concomitant]
  17. GLICLAZIDE [Concomitant]
  18. CHLORDIAZEPOXIDE HCL [Concomitant]
  19. ONDANSETRON [Concomitant]
  20. MORPHINE [Concomitant]

REACTIONS (18)
  - BLOOD UREA INCREASED [None]
  - BUNDLE BRANCH BLOCK [None]
  - CONDITION AGGRAVATED [None]
  - ELECTROCARDIOGRAM ABNORMAL [None]
  - ELECTROCARDIOGRAM T WAVE ABNORMAL [None]
  - HAEMOTHORAX [None]
  - HYPERKALAEMIA [None]
  - HYPONATRAEMIA [None]
  - HYPOXIA [None]
  - MALIGNANT NEOPLASM PROGRESSION [None]
  - MEDICAL DEVICE COMPLICATION [None]
  - MYOCARDIAL ISCHAEMIA [None]
  - PCO2 DECREASED [None]
  - PLEURAL EFFUSION [None]
  - QRS AXIS ABNORMAL [None]
  - RESPIRATORY FAILURE [None]
  - SINUS TACHYCARDIA [None]
  - SMALL CELL LUNG CANCER EXTENSIVE STAGE [None]
